FAERS Safety Report 20691539 (Version 2)
Quarter: 2022Q2

REPORT INFORMATION
  Report Type: Spontaneous
  Country: AR (occurrence: AR)
  Receive Date: 20220408
  Receipt Date: 20220525
  Transmission Date: 20220721
  Serious: No
  Sender: FDA-Public Use
  Company Number: AR-PFIZER INC-202200416619

PATIENT
  Age: 10 Year
  Sex: Female

DRUGS (1)
  1. GENOTROPIN [Suspect]
     Active Substance: SOMATROPIN
     Indication: Short stature
     Dosage: 0.1 TO 0.5 MG, 7X/WEEK
     Dates: start: 20220123, end: 20220313

REACTIONS (3)
  - Drug dose omission by device [Not Recovered/Not Resolved]
  - Device occlusion [Not Recovered/Not Resolved]
  - Device leakage [Not Recovered/Not Resolved]
